FAERS Safety Report 5741797-8 (Version None)
Quarter: 2008Q2

REPORT INFORMATION
  Report Type: 
  Country: None (occurrence: None)
  Receive Date: 20080515
  Receipt Date: 20080515
  Transmission Date: 20081010
  Serious: Yes (Life-Threatening, Hospitalization, Disabling)
  Sender: FDA-Public Use
  Company Number: None

PATIENT
  Age: 64 Year
  Sex: Male
  Weight: 108.4097 kg

DRUGS (1)
  1. ENTOCORT EC [Suspect]
     Indication: CROHN'S DISEASE
     Dosage: 3MG 3 PER DAY

REACTIONS (4)
  - BODY HEIGHT DECREASED [None]
  - BONE DENSITY DECREASED [None]
  - SALIVARY GLAND CANCER [None]
  - VITAMIN D DECREASED [None]
